FAERS Safety Report 11783745 (Version 1)
Quarter: 2015Q4

REPORT INFORMATION
  Report Type: Spontaneous
  Country: IT (occurrence: IT)
  Receive Date: 20151127
  Receipt Date: 20151127
  Transmission Date: 20160305
  Serious: Yes (Hospitalization)
  Sender: FDA-Public Use
  Company Number: IT-HOSPIRA-3087615

PATIENT
  Age: 71 Year
  Sex: Male
  Weight: 80 kg

DRUGS (4)
  1. FLUOROURACIL. [Concomitant]
     Active Substance: FLUOROURACIL
     Indication: HETEROPLASIA
     Route: 040
     Dates: start: 20151111, end: 20151111
  2. FLUOROURACIL. [Concomitant]
     Active Substance: FLUOROURACIL
     Indication: HETEROPLASIA
     Dosage: EVERY 14 DAYS
     Dates: start: 20151111, end: 20151111
  3. FOLINIC ACID [Concomitant]
     Active Substance: LEUCOVORIN
     Indication: HETEROPLASIA
     Dosage: 200 MG/MQ; EVERY 14 DAYS
     Dates: start: 20151111
  4. OXALIPLATIN. [Suspect]
     Active Substance: OXALIPLATIN
     Indication: HETEROPLASIA
     Dosage: 85 MG/MQ OF THE BODY SURFACE; EVERY 14 DAYS
     Route: 042
     Dates: start: 20151111, end: 20151111

REACTIONS (4)
  - Neutropenia [Unknown]
  - Generalised tonic-clonic seizure [Recovered/Resolved]
  - Loss of consciousness [Recovered/Resolved]
  - Syncope [Recovered/Resolved]

NARRATIVE: CASE EVENT DATE: 20151111
